FAERS Safety Report 7200892-7 (Version None)
Quarter: 2010Q4

REPORT INFORMATION
  Report Type: 
  Country: None (occurrence: None)
  Receive Date: 20101228
  Receipt Date: 20101221
  Transmission Date: 20110411
  Serious: Yes (Life-Threatening)
  Sender: FDA-Public Use
  Company Number: UG-ABBOTT-10P-165-0693691-00

PATIENT
  Age: 27 Month
  Sex: Male

DRUGS (6)
  1. ALUVIA TABLETS [Suspect]
     Indication: MALARIA PROPHYLAXIS
     Route: 048
     Dates: start: 20100209
  2. AZT [Concomitant]
     Indication: MALARIA PROPHYLAXIS
     Dates: start: 20100209, end: 20100729
  3. AZT [Concomitant]
     Dates: start: 20101028
  4. COTRIM [Concomitant]
     Indication: MALARIA PROPHYLAXIS
     Dates: start: 20100209, end: 20100729
  5. COTRIM [Concomitant]
     Dates: start: 20100921
  6. LAMIVUDINE (EPIVIR HBV) [Concomitant]
     Indication: MALARIA PROPHYLAXIS
     Dates: start: 20100209

REACTIONS (1)
  - NEUTROPENIA [None]
